FAERS Safety Report 5802726-1 (Version None)
Quarter: 2008Q3

REPORT INFORMATION
  Report Type: 
  Country: None (occurrence: None)
  Receive Date: 20080703
  Receipt Date: 20080627
  Transmission Date: 20090109
  Serious: Yes (Death, Other)
  Sender: FDA-Public Use
  Company Number: 062-21880-08040389

PATIENT
  Age: 52 Year
  Sex: Male
  Weight: 70 kg

DRUGS (4)
  1. REVLIMID [Suspect]
     Indication: MULTIPLE MYELOMA
     Dosage: 25 MG, 1 IN 1 D, ORAL, 20 MG, 1 IN 1 D, ORAL
     Route: 048
     Dates: start: 20070101, end: 20071201
  2. REVLIMID [Suspect]
     Indication: MULTIPLE MYELOMA
     Dosage: 25 MG, 1 IN 1 D, ORAL, 20 MG, 1 IN 1 D, ORAL
     Route: 048
     Dates: start: 20071226, end: 20080103
  3. DEXAMETHASONE TAB [Concomitant]
  4. LOW MOLECULAR HEPARIN (HEPARIN) [Concomitant]

REACTIONS (4)
  - BRONCHOPNEUMONIA [None]
  - DISEASE PROGRESSION [None]
  - RENAL FAILURE ACUTE [None]
  - RESPIRATORY FAILURE [None]
